FAERS Safety Report 19237299 (Version 2)
Quarter: 2021Q2

REPORT INFORMATION
  Report Type: Spontaneous
  Country: CA (occurrence: CA)
  Receive Date: 20210510
  Receipt Date: 20210601
  Transmission Date: 20210717
  Serious: Yes (Other)
  Sender: FDA-Public Use
  Company Number: CA-BEH-2021131589

PATIENT
  Sex: Female
  Weight: 150 kg

DRUGS (14)
  1. PRIVIGEN [Suspect]
     Active Substance: HUMAN IMMUNOGLOBULIN G
     Indication: TOXIC SHOCK SYNDROME STAPHYLOCOCCAL
     Dosage: 10 GRAM
     Route: 042
     Dates: start: 20210424, end: 20210424
  2. PRIVIGEN [Suspect]
     Active Substance: HUMAN IMMUNOGLOBULIN G
     Dosage: 45 GRAM, TOT
     Route: 042
     Dates: start: 20210426, end: 20210426
  3. VANCOMYCIN [Concomitant]
     Active Substance: VANCOMYCIN
  4. PIPTAZONE [Concomitant]
     Active Substance: PIPERACILLIN SODIUM\TAZOBACTAM SODIUM
  5. RINGERS LACTATE [Concomitant]
     Active Substance: CALCIUM CHLORIDE\POTASSIUM CHLORIDE\SODIUM LACTATE
     Dosage: 2 LITER
  6. PRIVIGEN [Suspect]
     Active Substance: HUMAN IMMUNOGLOBULIN G
     Indication: SEVERE INVASIVE STREPTOCOCCAL INFECTION
     Dosage: 160 GRAM
     Route: 042
     Dates: start: 20210424, end: 20210426
  7. CEFAZOLIN [Concomitant]
     Active Substance: CEFAZOLIN
  8. LEVOPHED [Concomitant]
     Active Substance: NOREPINEPHRINE BITARTRATE
  9. BICARBONATE SODIUM [Concomitant]
     Active Substance: SODIUM BICARBONATE
     Indication: ACIDOSIS
  10. PRIVIGEN [Suspect]
     Active Substance: HUMAN IMMUNOGLOBULIN G
     Indication: FASCIITIS
     Dosage: 10 GRAM
     Route: 042
     Dates: start: 20210425, end: 20210426
  11. CLINDAMYCIN. [Concomitant]
     Active Substance: CLINDAMYCIN
  12. PRIVIGEN [Suspect]
     Active Substance: HUMAN IMMUNOGLOBULIN G
     Dosage: 90 GRAM, TOT
     Route: 042
     Dates: start: 20210424, end: 20210424
  13. PRIVIGEN [Suspect]
     Active Substance: HUMAN IMMUNOGLOBULIN G
     Dosage: 45 GRAM, TOT
     Route: 042
     Dates: start: 20210425, end: 20210425
  14. BICARBONATE SODIUM [Concomitant]
     Active Substance: SODIUM BICARBONATE
     Indication: ACIDOSIS

REACTIONS (10)
  - Multiple organ dysfunction syndrome [Recovering/Resolving]
  - Haemolysis [Recovered/Resolved]
  - Coombs direct test positive [Recovered/Resolved]
  - No adverse event [Unknown]
  - Blood bilirubin increased [Recovering/Resolving]
  - Off label use [Unknown]
  - Liver function test increased [Recovering/Resolving]
  - Blood lactate dehydrogenase increased [Recovering/Resolving]
  - Hypoxia [Recovered/Resolved]
  - Haemoglobin decreased [Recovered/Resolved]

NARRATIVE: CASE EVENT DATE: 20210424
